FAERS Safety Report 5232201-7 (Version None)
Quarter: 2007Q1

REPORT INFORMATION
  Report Type: 
  Country: None (occurrence: None)
  Receive Date: 20070205
  Receipt Date: 20070119
  Transmission Date: 20070707
  Serious: Yes (Other)
  Sender: FDA-Public Use
  Company Number: 2007SP001127

PATIENT
  Age: 50 Year
  Sex: Male
  Weight: 112.4921 kg

DRUGS (2)
  1. LOTRIMIN ULTRA (BUTENAFINE HYDROCHLORIDE) [Suspect]
     Indication: TINEA CRURIS
     Dosage: TOP
     Route: 061
     Dates: start: 20050201, end: 20050201
  2. LAMISIL /00992601/ [Concomitant]

REACTIONS (9)
  - BALANITIS [None]
  - ERECTILE DYSFUNCTION [None]
  - PENILE VEIN THROMBOSIS [None]
  - PHIMOSIS [None]
  - POST INFLAMMATORY PIGMENTATION CHANGE [None]
  - PRURITUS GENITAL [None]
  - SELF-MEDICATION [None]
  - SKIN HYPOPIGMENTATION [None]
  - TINEA INFECTION [None]
